FAERS Safety Report 8417956-2 (Version None)
Quarter: 2012Q2

REPORT INFORMATION
  Report Type: 
  Country: None (occurrence: None)
  Receive Date: 20120531
  Receipt Date: 20120523
  Transmission Date: 20120825
  Serious: Yes (Hospitalization, Other)
  Sender: FDA-Public Use
  Company Number: 2012050145

PATIENT
  Age: 34 Year
  Sex: Male

DRUGS (1)
  1. CARISOPRODOL [Suspect]
     Dosage: IV
     Route: 042

REACTIONS (6)
  - TRICUSPID VALVE INCOMPETENCE [None]
  - INCORRECT ROUTE OF DRUG ADMINISTRATION [None]
  - PULMONARY HYPERTENSION [None]
  - RESPIRATORY DISTRESS [None]
  - WRONG TECHNIQUE IN DRUG USAGE PROCESS [None]
  - PULMONARY MICROEMBOLI [None]
